FAERS Safety Report 11297201 (Version 3)
Quarter: 2015Q4

REPORT INFORMATION
  Report Type: Spontaneous
  Country: US (occurrence: US)
  Receive Date: 20150722
  Receipt Date: 20151104
  Transmission Date: 20160304
  Serious: No
  Sender: FDA-Public Use
  Company Number: US-ELI_LILLY_AND_COMPANY-US201010005963

PATIENT
  Sex: Female

DRUGS (2)
  1. FORTEO [Suspect]
     Active Substance: TERIPARATIDE
     Indication: OSTEOPOROSIS
     Dosage: 20 UG, DAILY (1/D)
     Dates: start: 20100925
  2. EVISTA [Suspect]
     Active Substance: RALOXIFENE HYDROCHLORIDE
     Indication: OSTEOPOROSIS
     Dosage: 60 MG, DAILY (1/D)
     Dates: start: 1999, end: 20110302

REACTIONS (8)
  - Dizziness [Recovered/Resolved]
  - Nausea [Recovering/Resolving]
  - Hypersomnia [Recovered/Resolved]
  - Dizziness [Unknown]
  - Fatigue [Unknown]
  - Constipation [Recovered/Resolved]
  - Lethargy [Unknown]
  - Asthenia [Recovered/Resolved]
